FAERS Safety Report 7285143-X (Version None)
Quarter: 2011Q1

REPORT INFORMATION
  Report Type: 
  Country: None (occurrence: None)
  Receive Date: 20110210
  Receipt Date: 20110208
  Transmission Date: 20110831
  Serious: Yes (Death)
  Sender: FDA-Public Use
  Company Number: PHFR2011GB00582

PATIENT
  Sex: Male

DRUGS (1)
  1. CLOZARIL [Suspect]
     Indication: SCHIZOPHRENIA
     Dosage: UNK MG, UNK
     Route: 048
     Dates: start: 20060522

REACTIONS (4)
  - PNEUMONIA [None]
  - GENERAL PHYSICAL CONDITION ABNORMAL [None]
  - HIGH DENSITY LIPOPROTEIN DECREASED [None]
  - GAIT DISTURBANCE [None]
